FAERS Safety Report 9839048 (Version 1)
Quarter: 2014Q1

REPORT INFORMATION
  Report Type: Spontaneous
  Country: US (occurrence: US)
  Receive Date: 20140123
  Receipt Date: 20140123
  Transmission Date: 20141002
  Serious: Yes (Other)
  Sender: FDA-Public Use
  Company Number: CHPA2014US001040

PATIENT
  Age: 52 Year
  Sex: Female

DRUGS (2)
  1. HABITROL [Suspect]
     Indication: SMOKING CESSATION THERAPY
     Dosage: 14 MG, QD
     Route: 062
     Dates: start: 201309, end: 2013
  2. HABITROL [Suspect]
     Dosage: UNK
     Route: 062
     Dates: start: 201309

REACTIONS (2)
  - Amnesia [Not Recovered/Not Resolved]
  - Agraphia [Not Recovered/Not Resolved]
